FAERS Safety Report 5606229-9 (Version None)
Quarter: 2008Q1

REPORT INFORMATION
  Report Type: 
  Country: None (occurrence: None)
  Receive Date: 20080129
  Receipt Date: 20070302
  Transmission Date: 20080703
  Serious: No
  Sender: FDA-Public Use
  Company Number: A0641615A

PATIENT
  Age: 25 Year
  Sex: Male

DRUGS (1)
  1. WELLBUTRIN [Suspect]
     Dosage: 37.5MG UNKNOWN
     Route: 048

REACTIONS (2)
  - THERAPEUTIC RESPONSE UNEXPECTED [None]
  - VISUAL DISTURBANCE [None]
